FAERS Safety Report 14963350 (Version 1)
Quarter: 2018Q2

REPORT INFORMATION
  Report Type: Spontaneous
  Country: NO (occurrence: NO)
  Receive Date: 20180601
  Receipt Date: 20180601
  Transmission Date: 20180711
  Serious: Yes (Hospitalization)
  Sender: FDA-Public Use
  Company Number: NO-009507513-1805NOR014184

PATIENT
  Age: 49 Year
  Sex: Female

DRUGS (2)
  1. MAXALT [Suspect]
     Active Substance: RIZATRIPTAN BENZOATE
     Indication: MIGRAINE
     Dosage: MIGRAINE FOR YEARS AND HAS HAD A SUBSTANTIAL USE OF DIFFERENT TRIPTANES. SHE TOOK ONE TABLET
     Route: 048
  2. TRISEKVENS [Concomitant]
     Active Substance: ETHINYL ESTRADIOL\NORETHINDRONE
     Dosage: UNK

REACTIONS (1)
  - Brain stem infarction [Recovering/Resolving]

NARRATIVE: CASE EVENT DATE: 2018
